FAERS Safety Report 16157890 (Version 1)
Quarter: 2019Q2

REPORT INFORMATION
  Report Type: Spontaneous
  Country: US (occurrence: US)
  Receive Date: 20190301
  Receipt Date: 20190301
  Transmission Date: 20190711
  Serious: Yes (Hospitalization)
  Sender: FDA-Public Use
  Company Number: None

PATIENT
  Sex: Male

DRUGS (5)
  1. XALKORI [Suspect]
     Active Substance: CRIZOTINIB
     Indication: ANAPLASTIC LARGE-CELL LYMPHOMA
     Route: 048
     Dates: start: 20190208
  2. POLYETH GLUCOLE [Concomitant]
  3. XARELTO [Concomitant]
     Active Substance: RIVAROXABAN
  4. RANITIDINE. [Concomitant]
     Active Substance: RANITIDINE
  5. ONDANSETRON [Concomitant]
     Active Substance: ONDANSETRON

REACTIONS (1)
  - Pyrexia [None]
